FAERS Safety Report 9491441 (Version 2)
Quarter: 2013Q1

REPORT INFORMATION
  Report Type: Not Available
  Country: US (occurrence: US)
  Receive Date: 20120619
  Receipt Date: 20120619
  Transmission Date: 20140127
  Serious: No
  Sender: FDA-Public Use
  Company Number: US-LUNDBECK-DKLU1076499

PATIENT
  Sex: Male

DRUGS (5)
  1. ONFI [Suspect]
     Indication: CONVULSION
     Route: 048
     Dates: start: 201201, end: 201202
  2. ONFI [Suspect]
     Route: 048
     Dates: start: 201201, end: 201202
  3. CARNITINE [Concomitant]
     Indication: SUPPLEMENTATION THERAPY
  4. KEPPRA [Concomitant]
     Indication: CONVULSION
  5. KETOGENIC DIET [Concomitant]
     Indication: CONVULSION

REACTIONS (1)
  - Irritability [Recovered/Resolved]
